FAERS Safety Report 8465213-0 (Version None)
Quarter: 2012Q2

REPORT INFORMATION
  Report Type: 
  Country: None (occurrence: None)
  Receive Date: 20120626
  Receipt Date: 20120620
  Transmission Date: 20120825
  Serious: Yes (Disabling, Other)
  Sender: FDA-Public Use
  Company Number: PHFR2012GB003597

PATIENT
  Age: 47 Year
  Sex: Female

DRUGS (4)
  1. PROCYCLIDINE HYDROCHLORIDE 2MG TAB [Concomitant]
  2. CLOZAPINE [Suspect]
     Indication: PSYCHOTIC DISORDER
     Dosage: 175 MG
     Route: 048
     Dates: end: 20120511
  3. IRON [Concomitant]
  4. TOLTERODINE TARTRATE [Concomitant]

REACTIONS (2)
  - CARDIAC FAILURE [None]
  - CARDIOMYOPATHY [None]
